FAERS Safety Report 19281703 (Version 1)
Quarter: 2021Q2

REPORT INFORMATION
  Report Type: Spontaneous
  Country: US (occurrence: US)
  Receive Date: 20210520
  Receipt Date: 20210520
  Transmission Date: 20210717
  Serious: No
  Sender: FDA-Public Use
  Company Number: US-SA-2021SA158462

PATIENT
  Age: 64 Year
  Sex: Female

DRUGS (1)
  1. TOUJEO [Suspect]
     Active Substance: INSULIN GLARGINE
     Indication: TYPE 2 DIABETES MELLITUS
     Dosage: DOSAGE : 55 UNITS DRUG INTERVAL DOSAGE : EVERY EVENING DRUG TREATMENT DURATION: BRAND NEW PEN FAILED
     Route: 065

REACTIONS (1)
  - Visual impairment [Unknown]
